FAERS Safety Report 20197428 (Version 2)
Quarter: 2022Q1

REPORT INFORMATION
  Report Type: Spontaneous
  Country: IN (occurrence: IN)
  Receive Date: 20211217
  Receipt Date: 20220121
  Transmission Date: 20220423
  Serious: Yes (Hospitalization, Other)
  Sender: FDA-Public Use
  Company Number: IN-MLMSERVICE-20211202-3253875-1

PATIENT
  Age: 32 Year
  Sex: Male

DRUGS (6)
  1. CLOZAPINE [Suspect]
     Active Substance: CLOZAPINE
     Indication: Schizophrenia
     Dosage: INCREASE OF 25 MG EVERY 2 DAYS.
     Dates: start: 2021
  2. RISPERIDONE [Concomitant]
     Active Substance: RISPERIDONE
     Indication: Schizophrenia
  3. CLONAZEPAM [Concomitant]
     Active Substance: CLONAZEPAM
     Dosage: 0.25-0.50 MG/DAY (DAY 1-26 OF ADMISSION)
     Dates: start: 2021
  4. TERBINAFINE [Concomitant]
     Active Substance: TERBINAFINE
     Indication: Antifungal treatment
     Dosage: DAY 31-47 OF ADMISSION
     Dates: start: 2021
  5. PANTOPRAZOLE, DOMPERIDONE [Concomitant]
     Dosage: 40 MG+10 MG/DAY
     Dates: start: 2021
  6. ITRACONAZOLE [Concomitant]
     Active Substance: ITRACONAZOLE
     Indication: Antifungal treatment
     Dosage: DAY 3-30 OF ADMISSION
     Dates: start: 2021

REACTIONS (4)
  - Hypertension [Recovering/Resolving]
  - Autonomic nervous system imbalance [Unknown]
  - Tachycardia [Unknown]
  - Sedation [Unknown]

NARRATIVE: CASE EVENT DATE: 20210101
